FAERS Safety Report 19521915 (Version 4)
Quarter: 2021Q3

REPORT INFORMATION
  Report Type: Report from Study
  Country: DE (occurrence: DE)
  Receive Date: 20210712
  Receipt Date: 20210924
  Transmission Date: 20211014
  Serious: Yes (Hospitalization)
  Sender: FDA-Public Use
  Company Number: DE-MYLANLABS-2021M1040763

PATIENT
  Age: 43 Year
  Sex: Female
  Weight: 65 kg

DRUGS (6)
  1. LETROZOLE. [Suspect]
     Active Substance: LETROZOLE
     Indication: HER2 NEGATIVE BREAST CANCER
     Dosage: 2.5 MILLIGRAM, QD
     Route: 065
     Dates: start: 20180112
  2. ZOMETA [Suspect]
     Active Substance: ZOLEDRONIC ACID
     Indication: METASTASES TO BONE
     Dosage: UNK
     Route: 042
     Dates: start: 20181012, end: 20201105
  3. LETROZOLE. [Suspect]
     Active Substance: LETROZOLE
     Dosage: 2.5 MILLIGRAM, QD
     Route: 048
     Dates: start: 20181012
  4. ZOMETA [Suspect]
     Active Substance: ZOLEDRONIC ACID
     Dosage: UNK
     Route: 042
     Dates: start: 20201012, end: 20201105
  5. PALBOCICLIB [Suspect]
     Active Substance: PALBOCICLIB
     Indication: HER2 NEGATIVE BREAST CANCER
     Dosage: 125 MILLIGRAM, QD, 125 MG, QD (FROM DAY 1 TO DAY 21)
     Route: 048
     Dates: start: 20180112
  6. PALBOCICLIB [Suspect]
     Active Substance: PALBOCICLIB
     Dosage: 125 MILLIGRAM, QD (125 MG, QD (FROM DAY 1 TO DAY 21))
     Route: 048
     Dates: start: 20181012

REACTIONS (1)
  - Osteonecrosis of jaw [Recovered/Resolved]

NARRATIVE: CASE EVENT DATE: 20201204
